FAERS Safety Report 7898464-4 (Version None)
Quarter: 2011Q4

REPORT INFORMATION
  Report Type: 
  Country: None (occurrence: None)
  Receive Date: 20111107
  Receipt Date: 20111028
  Transmission Date: 20120403
  Serious: Yes (Other)
  Sender: FDA-Public Use
  Company Number: GB-BAYER-2011-107307

PATIENT
  Age: 65 Year
  Sex: Female
  Weight: 61.7 kg

DRUGS (21)
  1. CLOPIXOL [Concomitant]
     Dosage: UNK
     Dates: start: 20110719
  2. LACTULOSE [Concomitant]
     Dosage: UNK
     Dates: start: 20110914
  3. NITROLINGUAL [Concomitant]
     Dosage: UNK
     Dates: start: 20110719
  4. OMEPRAZOLE [Concomitant]
     Dosage: UNK
     Dates: start: 20110914
  5. E45 [Concomitant]
  6. GAVISCON [Concomitant]
     Dosage: UNK
     Dates: start: 20110715
  7. ISOSORBIDE MONONITRATE [Concomitant]
     Dosage: UNK
     Dates: start: 20110719
  8. ZOPICLONE [Concomitant]
     Dosage: UNK
     Dates: start: 20110719
  9. EUMOVATE [Concomitant]
     Dosage: UNK
     Dates: start: 20110719
  10. BETNOVATE [Concomitant]
     Dosage: UNK
     Dates: start: 20110914
  11. TRAMADOL HCL [Concomitant]
     Dosage: UNK
     Dates: start: 20110719
  12. NAPROXEN SODIUM [Suspect]
     Indication: PRODUCT USED FOR UNKNOWN INDICATION
     Dosage: UNK
     Dates: start: 20111019
  13. CHLORPROMAZINE [Concomitant]
     Dosage: UNK
     Dates: start: 20110715
  14. LORAZEPAM [Concomitant]
     Dosage: UNK
     Dates: start: 20110719
  15. DIAZEPAM [Concomitant]
     Dosage: UNK
     Dates: start: 20110719
  16. PREDNISOLONE [Concomitant]
     Dosage: UNK
     Dates: start: 20110719
  17. PROCYCLIDINE HYDROCHLORIDE 2MG TAB [Concomitant]
     Dosage: UNK
     Dates: start: 20110719
  18. VENTOLIN [Concomitant]
     Dosage: UNK
     Dates: start: 20110719
  19. BECLOMETHASONE DIPROPIONATE [Concomitant]
  20. TPN [Concomitant]
     Dosage: UNK
     Dates: start: 20110712
  21. TEGRETOL [Concomitant]
     Dosage: UNK
     Dates: start: 20110719

REACTIONS (1)
  - BLISTER [None]
